FAERS Safety Report 21740220 (Version 1)
Quarter: 2022Q4

REPORT INFORMATION
  Report Type: Spontaneous
  Country: IT (occurrence: IT)
  Receive Date: 20221216
  Receipt Date: 20221216
  Transmission Date: 20230112
  Serious: Yes (Death, Life-Threatening, Hospitalization)
  Sender: FDA-Public Use
  Company Number: None

PATIENT
  Age: 76 Year
  Sex: Female

DRUGS (1)
  1. KEYTRUDA [Suspect]
     Active Substance: PEMBROLIZUMAB
     Indication: Malignant melanoma
     Dosage: W017447 EXPIRES 7/31/2023
     Route: 042
     Dates: start: 20221010, end: 20221010

REACTIONS (7)
  - Myositis [Fatal]
  - Respiratory failure [Fatal]
  - Hypertransaminasaemia [Fatal]
  - Eyelid ptosis [Fatal]
  - Myocarditis [Fatal]
  - Rhabdomyolysis [Fatal]
  - Arthralgia [Fatal]

NARRATIVE: CASE EVENT DATE: 20221020
